FAERS Safety Report 5948025-9 (Version None)
Quarter: 2008Q4

REPORT INFORMATION
  Report Type: 
  Country: None (occurrence: None)
  Receive Date: 20081110
  Receipt Date: 20081110
  Transmission Date: 20090506
  Serious: Yes (Hospitalization)
  Sender: FDA-Public Use
  Company Number: None

PATIENT
  Sex: Male
  Weight: 113 kg

DRUGS (5)
  1. BUSULFAN [Suspect]
     Dosage: 148.4 MG
  2. FLUDARABINE PHOSPHATE [Suspect]
     Dosage: 928 MG
  3. G-CSF (FILGRASTIM, AMGEN) [Suspect]
     Dosage: 2.88 MG
  4. METHOTREXATE [Suspect]
     Dosage: 44 MG
  5. TACROLIMUS [Suspect]
     Dosage: 220 MG

REACTIONS (4)
  - NO THERAPEUTIC RESPONSE [None]
  - PANCYTOPENIA [None]
  - PYREXIA [None]
  - TRANSPLANT FAILURE [None]
